FAERS Safety Report 6078683-2 (Version None)
Quarter: 2009Q1

REPORT INFORMATION
  Report Type: 
  Country: None (occurrence: None)
  Receive Date: 20090216
  Receipt Date: 20090210
  Transmission Date: 20090719
  Serious: Yes (Other)
  Sender: FDA-Public Use
  Company Number: AT-BAYER-200912818GPV

PATIENT
  Age: 78 Year
  Sex: Female

DRUGS (1)
  1. MABCAMPATH [Suspect]
     Indication: CHRONIC LYMPHOCYTIC LEUKAEMIA
     Dates: start: 20060922, end: 20061004

REACTIONS (1)
  - SQUAMOUS CELL CARCINOMA OF SKIN [None]
